FAERS Safety Report 6436312-X (Version None)
Quarter: 2009Q4

REPORT INFORMATION
  Report Type: 
  Country: None (occurrence: None)
  Receive Date: 20091111
  Receipt Date: 20091023
  Transmission Date: 20100525
  Serious: Yes (Hospitalization)
  Sender: FDA-Public Use
  Company Number: B0600485A

PATIENT
  Sex: Male

DRUGS (6)
  1. ARTIST [Suspect]
     Indication: CARDIAC FAILURE
     Dosage: 10MG PER DAY
     Route: 048
     Dates: start: 20090301, end: 20091015
  2. BEPRICOR [Suspect]
     Indication: ATRIAL FIBRILLATION
     Dosage: 100MG TWICE PER DAY
     Route: 048
     Dates: start: 20090301, end: 20091015
  3. CARDENALIN [Concomitant]
     Indication: DRUG USE FOR UNKNOWN INDICATION
     Route: 065
     Dates: start: 20090301
  4. ADALAT CC [Concomitant]
     Indication: DRUG USE FOR UNKNOWN INDICATION
     Route: 065
     Dates: start: 20090301
  5. OLMETEC [Concomitant]
     Indication: DRUG USE FOR UNKNOWN INDICATION
     Route: 065
     Dates: start: 20090301
  6. FENTANYL [Concomitant]
     Indication: DRUG USE FOR UNKNOWN INDICATION
     Route: 065
     Dates: start: 20091015, end: 20091015

REACTIONS (1)
  - SINUS ARREST [None]
